FAERS Safety Report 21260924 (Version 2)
Quarter: 2022Q3

REPORT INFORMATION
  Report Type: Report from Study
  Country: DE (occurrence: DE)
  Receive Date: 20220826
  Receipt Date: 20220907
  Transmission Date: 20221027
  Serious: Yes (Other)
  Sender: FDA-Public Use
  Company Number: DE-MYLANLABS-2022M1088808

PATIENT
  Sex: Male

DRUGS (7)
  1. ETORICOXIB [Suspect]
     Active Substance: ETORICOXIB
     Indication: Axial spondyloarthritis
     Dosage: 120 MILLIGRAM
     Route: 065
     Dates: start: 20170505
  2. ETORICOXIB [Suspect]
     Active Substance: ETORICOXIB
     Dosage: 30 MILLIGRAM
     Route: 065
     Dates: start: 20170505, end: 20171001
  3. ETORICOXIB [Suspect]
     Active Substance: ETORICOXIB
     Dosage: 60 MILLIGRAM START DATE: 14-JAN-2019
     Route: 065
  4. ETORICOXIB [Suspect]
     Active Substance: ETORICOXIB
     Dosage: 90 MILLIGRAM START DATE: 14-JAN-2019
     Route: 065
     Dates: start: 20190114
  5. ETORICOXIB [Suspect]
     Active Substance: ETORICOXIB
     Dosage: 120 MILLIGRAM START DATE: 10-DEC-2020
     Route: 065
  6. IBUPROFEN [Suspect]
     Active Substance: IBUPROFEN
     Indication: Axial spondyloarthritis
     Dosage: 600 MILLIGRAM
     Route: 065
     Dates: start: 20180401, end: 20180404
  7. IBUPROFEN [Suspect]
     Active Substance: IBUPROFEN
     Dosage: 1200 MILLIGRAM
     Route: 065
     Dates: start: 20181001, end: 20181015

REACTIONS (2)
  - Pregnancy of partner [Recovered/Resolved]
  - Live birth [Recovered/Resolved]

NARRATIVE: CASE EVENT DATE: 20181115
